FAERS Safety Report 20822680 (Version 2)
Quarter: 2023Q4

REPORT INFORMATION
  Report Type: Spontaneous
  Country: US (occurrence: US)
  Receive Date: 20220512
  Receipt Date: 20231218
  Transmission Date: 20240110
  Serious: No
  Sender: FDA-Public Use
  Company Number: US-PFIZER INC-2020004298

PATIENT
  Age: 67 Year

DRUGS (2)
  1. PREMARIN [Suspect]
     Active Substance: ESTROGENS, CONJUGATED
     Indication: Hormone replacement therapy
     Dosage: 0.45 MG, TAKE ONE TABLET (0.45 MG TOTAL) BY MOUTH ONE (1) TIME A DAY
     Route: 048
  2. PREMARIN [Suspect]
     Active Substance: ESTROGENS, CONJUGATED
     Indication: Oestrogen deficiency

REACTIONS (2)
  - Intentional product misuse [Unknown]
  - Laryngitis [Unknown]

NARRATIVE: CASE EVENT DATE: 20220419
